FAERS Safety Report 9257390 (Version 1)
Quarter: 2013Q2

REPORT INFORMATION
  Report Type: Spontaneous
  Country: US (occurrence: US)
  Receive Date: 20130426
  Receipt Date: 20130426
  Transmission Date: 20140414
  Serious: Yes (Death, Other)
  Sender: FDA-Public Use
  Company Number: US-PFIZER INC-2013129750

PATIENT
  Age: 71 Year
  Sex: Female

DRUGS (3)
  1. NORVASC [Suspect]
     Dosage: 5 MG, UNK
  2. LIPITOR [Suspect]
     Dosage: 20 MG, UNK
  3. NITROSTAT [Suspect]
     Dosage: 0.4 MG, UNK

REACTIONS (1)
  - Death [Fatal]
